FAERS Safety Report 5237058-6 (Version None)
Quarter: 2007Q1

REPORT INFORMATION
  Report Type: 
  Country: None (occurrence: None)
  Receive Date: 20070209
  Receipt Date: 20070131
  Transmission Date: 20070707
  Serious: Yes (Hospitalization)
  Sender: FDA-Public Use
  Company Number: 163-21880-07020044

PATIENT
  Age: 47 Year
  Sex: Male

DRUGS (14)
  1. REVLIMID [Suspect]
     Indication: MULTIPLE MYELOMA
     Dosage: 25 MG, 1 IN 1 D, ORAL
     Route: 048
     Dates: start: 20070120
  2. DEXAMETHASONE TAB [Concomitant]
  3. OMEPRAZOLE [Concomitant]
  4. VALACYCLOVIR (ANTIBIOTICS) [Concomitant]
  5. FEXOFENADINE HCL [Concomitant]
  6. PENICILLIN-VK [Concomitant]
  7. ATORVASTATIN CALCIUM [Concomitant]
  8. ASPIRIN [Concomitant]
  9. METOPROLOL TARTRATE [Concomitant]
  10. CLOPIDOGREL [Concomitant]
  11. LISINOPRIL [Concomitant]
  12. GABAPENTIN [Concomitant]
  13. PAROXETINE [Concomitant]
  14. DOCUSATE PLUS SENNA (SENOKOT-S) [Concomitant]

REACTIONS (3)
  - CARDIOVASCULAR DISORDER [None]
  - HYPONATRAEMIA [None]
  - STENT PLACEMENT [None]
